FAERS Safety Report 19087749 (Version 2)
Quarter: 2021Q2

REPORT INFORMATION
  Report Type: Report from Study
  Country: US (occurrence: US)
  Receive Date: 20210402
  Receipt Date: 20210414
  Transmission Date: 20210717
  Serious: Yes (Death, Other)
  Sender: FDA-Public Use
  Company Number: US-JNJFOC-20210320075

PATIENT
  Age: 58 Year
  Sex: Male
  Weight: 83.6 kg

DRUGS (3)
  1. MACITENTAN [Suspect]
     Active Substance: MACITENTAN
     Indication: PULMONARY ARTERIAL HYPERTENSION
     Route: 048
  2. TREPROSTINIL. [Concomitant]
     Active Substance: TREPROSTINIL
  3. SILDENAFIL CITRATE. [Concomitant]
     Active Substance: SILDENAFIL CITRATE

REACTIONS (11)
  - Productive cough [Unknown]
  - Paraesthesia [Unknown]
  - Myalgia [Not Recovered/Not Resolved]
  - COVID-19 [Fatal]
  - Brain neoplasm [Unknown]
  - Flushing [Unknown]
  - Ocular discomfort [Unknown]
  - Oxygen saturation decreased [Unknown]
  - Dyspnoea [Unknown]
  - Pain [Unknown]
  - Headache [Unknown]

NARRATIVE: CASE EVENT DATE: 202102
